FAERS Safety Report 9904839 (Version 1)
Quarter: 2013Q2

REPORT INFORMATION
  Report Type: Spontaneous
  Country: US (occurrence: None)
  Receive Date: 20130305
  Receipt Date: 20130305
  Transmission Date: 20140414
  Serious: Yes (Hospitalization, Other)
  Sender: FDA-Public Use
  Company Number: 163-21880-12030768

PATIENT
  Age: 90 Year
  Sex: Female
  Weight: 56.7 kg

DRUGS (1)
  1. REVLIMID (LENALIDOMIDE) CAPSULES [Suspect]
     Indication: PLASMA CELL MYELOMA
     Route: 048
     Dates: start: 20120112

REACTIONS (6)
  - Full blood count decreased [None]
  - Red blood cell count decreased [None]
  - Diarrhoea [None]
  - Fatigue [None]
  - Gastrointestinal tract irritation [None]
  - Nausea [None]
